FAERS Safety Report 24163867 (Version 2)
Quarter: 2024Q3

REPORT INFORMATION
  Report Type: Report from Study
  Country: CO (occurrence: CO)
  Receive Date: 20240801
  Receipt Date: 20240809
  Transmission Date: 20241017
  Serious: Yes (Other)
  Sender: ABBVIE
  Company Number: CO-ABBVIE-5860915

PATIENT
  Sex: Female
  Weight: 90 kg

DRUGS (3)
  1. SKYRIZI [Suspect]
     Active Substance: RISANKIZUMAB-RZAA
     Indication: Psoriasis
     Dosage: FORM STRENGTH: 150 MG
     Route: 058
     Dates: start: 20210326, end: 20240422
  2. OSMITROL [Concomitant]
     Active Substance: MANNITOL
     Indication: Surgery
     Dosage: FREQUENCY TEXT: 2 DROPS IN THE LEFT EYE EVERY 2 HOURS.
     Route: 047
     Dates: start: 20240719
  3. PREDNISOLONE ACETATE [Concomitant]
     Active Substance: PREDNISOLONE ACETATE
     Indication: Surgery
     Dosage: FREQUENCY TEXT: 3 DROPS IN THE LEFT EYE EVERY 3 HOURS.
     Route: 047
     Dates: start: 20240719

REACTIONS (1)
  - Cataract [Recovering/Resolving]
